FAERS Safety Report 9876067 (Version 2)
Quarter: 2014Q1

REPORT INFORMATION
  Report Type: Other
  Country: US (occurrence: US)
  Receive Date: 20140206
  Receipt Date: 20140206
  Transmission Date: 20141002
  Serious: No
  Sender: FDA-Public Use
  Company Number: US-ACORDA-ACO_35929_2013

PATIENT
  Age: 73 Year
  Sex: Female
  Weight: 74.83 kg

DRUGS (6)
  1. AMPYRA [Suspect]
     Indication: GAIT DISTURBANCE
     Dosage: 10 MG, Q 12 HRS
     Route: 048
     Dates: start: 201304
  2. NUVIGIL [Concomitant]
     Indication: FATIGUE
     Dosage: 150 MG, QD
     Route: 048
     Dates: start: 2012
  3. PREDNISONE [Concomitant]
     Indication: PRODUCT USED FOR UNKNOWN INDICATION
     Dosage: 5 MG, QOD
     Route: 048
     Dates: start: 2000
  4. EFFEXOR XR [Concomitant]
     Indication: DEPRESSION
     Dosage: 75 MG, QD
     Route: 048
     Dates: start: 2006
  5. LISINOPRIL [Concomitant]
     Indication: PRODUCT USED FOR UNKNOWN INDICATION
     Dosage: 20 MG, QD
     Route: 048
     Dates: start: 2008
  6. REBIF [Concomitant]
     Indication: MULTIPLE SCLEROSIS
     Dosage: 44 ?G, THREE TIMES/ WEEK
     Route: 058
     Dates: start: 2008

REACTIONS (4)
  - Bladder disorder [Unknown]
  - Micturition urgency [Unknown]
  - Feeling abnormal [Recovered/Resolved]
  - Headache [Recovered/Resolved]
